FAERS Safety Report 4510308-7 (Version None)
Quarter: 2004Q4

REPORT INFORMATION
  Report Type: 
  Country: None (occurrence: None)
  Receive Date: 20041122
  Receipt Date: 20041109
  Transmission Date: 20050328
  Serious: Yes (Death)
  Sender: FDA-Public Use
  Company Number: 2004045177

PATIENT
  Age: 49 Year
  Sex: Female

DRUGS (8)
  1. NEURONTIN [Suspect]
     Indication: FIBROMYALGIA
     Dosage: 300 MG, ORAL
     Route: 048
     Dates: start: 20040101, end: 20040101
  2. ESTRADIOL [Concomitant]
  3. ALL OTHER THERAPEUTIC PRODUCTS (ALL OTHER THERAPEUTIC PRODUCTS) [Concomitant]
  4. AMLODIPINE BESYLATE [Concomitant]
  5. LEVOTHYROXINE SODIUM [Concomitant]
  6. OXCARBAZEPINE (OXCARBAZEPINE) [Concomitant]
  7. OLANZAPINE [Concomitant]
  8. VENLAFAXINE HCL [Concomitant]

REACTIONS (1)
  - SUDDEN DEATH [None]
